FAERS Safety Report 16706140 (Version 1)
Quarter: 2019Q3

REPORT INFORMATION
  Report Type: Spontaneous
  Country: US (occurrence: US)
  Receive Date: 20190815
  Receipt Date: 20190815
  Transmission Date: 20191004
  Serious: No
  Sender: FDA-Public Use
  Company Number: US-BAYER-2019-150804

PATIENT
  Age: 74 Year
  Sex: Female
  Weight: 66 kg

DRUGS (1)
  1. ZEGERID OTC CAPSULES [Suspect]
     Active Substance: OMEPRAZOLE\SODIUM BICARBONATE
     Indication: DYSPEPSIA
     Dosage: 2 DF
     Route: 048
     Dates: start: 201904, end: 201904

REACTIONS (4)
  - Disorientation [Unknown]
  - Dizziness [Recovered/Resolved]
  - Lethargy [None]
  - Extra dose administered [None]

NARRATIVE: CASE EVENT DATE: 201904
